FAERS Safety Report 9451063 (Version 2)
Quarter: 2014Q1

REPORT INFORMATION
  Report Type: Spontaneous
  Country: US (occurrence: US)
  Receive Date: 20130809
  Receipt Date: 20140310
  Transmission Date: 20141002
  Serious: Yes (Hospitalization)
  Sender: FDA-Public Use
  Company Number: US-B.I. PHARMACEUTICALS,INC./RIDGEFIELD-2013-BI-23873BP

PATIENT
  Sex: Male
  Weight: 111.13 kg

DRUGS (17)
  1. PRADAXA [Suspect]
     Indication: ATRIAL FIBRILLATION
     Dosage: 300 MG
     Route: 065
     Dates: start: 20120718, end: 20120724
  2. XARELTO [Suspect]
     Indication: PRODUCT USED FOR UNKNOWN INDICATION
     Dosage: 20 MG
     Route: 065
     Dates: start: 20120730, end: 20120814
  3. BAYER ASPIRIN [Concomitant]
     Dosage: 81 MG
     Route: 048
     Dates: start: 1991, end: 2013
  4. NEXIUM [Concomitant]
     Dosage: 40 MG
     Route: 048
     Dates: start: 1991, end: 20120816
  5. BYSTOLIC [Concomitant]
     Dosage: 10 MG
     Route: 065
     Dates: start: 1998, end: 2013
  6. EXFORGE [Concomitant]
     Route: 048
     Dates: start: 20120307, end: 2013
  7. ACTOPLUS MET [Concomitant]
     Route: 048
     Dates: start: 20120420, end: 2013
  8. LEVEMIR [Concomitant]
     Dosage: 60 U
     Route: 058
     Dates: start: 20120621, end: 2013
  9. NOVOFINE [Concomitant]
     Route: 065
     Dates: start: 20110418, end: 2013
  10. BENTYL [Concomitant]
     Dosage: 80 MG
     Route: 048
  11. CIPROFLOXACIN [Concomitant]
     Dosage: 1000 MG
     Route: 048
  12. FLAGYL [Concomitant]
     Route: 048
  13. HYDROCHLOROTHIAZIDE [Concomitant]
     Dosage: 12.5 MG
     Route: 048
  14. LOVAZA [Concomitant]
     Dosage: 4 G
     Route: 048
  15. VITAMIN C [Concomitant]
     Dosage: 1500 MG
     Route: 048
  16. VITAMIN D [Concomitant]
     Route: 048
  17. VYTORIN [Concomitant]
     Route: 048
     Dates: end: 20120820

REACTIONS (1)
  - Gastritis erosive [Unknown]
